FAERS Safety Report 8710037 (Version 2)
Quarter: 2012Q4

REPORT INFORMATION
  Report Type: 
  Country: JP (occurrence: JP)
  Receive Date: 20120806
  Receipt Date: 20121228
  Transmission Date: 20130627
  Serious: Yes (Hospitalization)
  Sender: FDA-Public Use
  Company Number: JP-JNJFOC-20120802541

PATIENT
  Age: 66 Year
  Sex: Male
  Weight: 70 kg

DRUGS (8)
  1. XARELTO [Suspect]
     Indication: CEREBROVASCULAR ACCIDENT PROPHYLAXIS
     Route: 048
     Dates: start: 20120707
  2. XARELTO [Suspect]
     Indication: ATRIAL FIBRILLATION
     Route: 048
     Dates: start: 20120707
  3. BAYASPIRIN [Concomitant]
     Route: 048
     Dates: start: 20101211
  4. OLMETEC [Concomitant]
     Route: 048
  5. NORVASC [Concomitant]
     Route: 048
  6. ARTIST [Concomitant]
     Route: 048
  7. MUCOSTA [Concomitant]
     Route: 048
  8. PARIET [Concomitant]
     Route: 048

REACTIONS (2)
  - Cerebral infarction [Recovered/Resolved]
  - Drug ineffective [Unknown]
